FAERS Safety Report 8127920-9 (Version None)
Quarter: 2011Q4

REPORT INFORMATION
  Report Type: 
  Country: None (occurrence: None)
  Receive Date: 20111230
  Receipt Date: 20111031
  Transmission Date: 20120403
  Serious: Yes (Hospitalization, Other)
  Sender: FDA-Public Use
  Company Number: 299853USA

PATIENT
  Age: 34 Year
  Sex: Female
  Weight: 56.6996 kg

DRUGS (6)
  1. FLUDROCORTISONE ACETATE [Concomitant]
  2. VENLAFAXINE [Suspect]
     Indication: SYNCOPE
     Dosage: VARIED (1-2/DAY) (37.5 MG), ORAL; (75 MG), ORAL; (150 MG) ORAL
     Route: 048
  3. VENLAFAXINE [Suspect]
     Indication: HYPOTENSION
     Dosage: VARIED (1-2/DAY) (37.5 MG), ORAL; (75 MG), ORAL; (150 MG) ORAL
     Route: 048
  4. CLONAZEPAM [Concomitant]
  5. LORAZEPAM [Concomitant]
  6. AMPHETAMINE AND DEXTROAMPHETAMINE SALTS [Concomitant]

REACTIONS (14)
  - VOMITING [None]
  - DIZZINESS [None]
  - MOOD ALTERED [None]
  - COGNITIVE DISORDER [None]
  - ASTHENIA [None]
  - WITHDRAWAL SYNDROME [None]
  - SYNCOPE [None]
  - BLOOD PRESSURE DECREASED [None]
  - FATIGUE [None]
  - NAUSEA [None]
  - MYALGIA [None]
  - PRESYNCOPE [None]
  - ANXIETY [None]
  - HEADACHE [None]
